FAERS Safety Report 7737586-5 (Version None)
Quarter: 2011Q3

REPORT INFORMATION
  Report Type: 
  Country: None (occurrence: None)
  Receive Date: 20110908
  Receipt Date: 20110901
  Transmission Date: 20111222
  Serious: Yes (Other)
  Sender: FDA-Public Use
  Company Number: US-MERCK-1107USA02296

PATIENT
  Age: 64 Year
  Sex: Female

DRUGS (8)
  1. MIRAPEX [Concomitant]
     Indication: PARKINSON'S DISEASE
     Route: 048
     Dates: start: 20000101
  2. AMBIEN [Concomitant]
     Indication: PARKINSON'S DISEASE
     Route: 048
     Dates: start: 20000101
  3. SINEMET [Suspect]
     Indication: PARKINSON'S DISEASE
     Route: 048
     Dates: start: 20110701
  4. CARBIDOPA + LEVODOPA [Suspect]
     Route: 065
  5. SINEMET [Suspect]
     Dosage: 4XDAY
     Route: 048
     Dates: start: 20010701
  6. VITAMINS (UNSPECIFIED) [Concomitant]
     Route: 048
  7. ASPIRIN [Concomitant]
     Indication: CARDIOVASCULAR EVENT PROPHYLAXIS
     Route: 048
     Dates: start: 20080101
  8. NEURONTIN [Concomitant]
     Route: 065

REACTIONS (13)
  - JOINT INJURY [None]
  - TREMOR [None]
  - INSOMNIA [None]
  - RHINORRHOEA [None]
  - GAIT DISTURBANCE [None]
  - BACK DISORDER [None]
  - BALANCE DISORDER [None]
  - NECK INJURY [None]
  - THINKING ABNORMAL [None]
  - FALL [None]
  - MEMORY IMPAIRMENT [None]
  - ADVERSE EVENT [None]
  - MOVEMENT DISORDER [None]
